FAERS Safety Report 5586327-9 (Version None)
Quarter: 2008Q1

REPORT INFORMATION
  Report Type: 
  Country: None (occurrence: None)
  Receive Date: 20080107
  Receipt Date: 20080107
  Transmission Date: 20080703
  Serious: Yes (Other)
  Sender: FDA-Public Use
  Company Number: None

PATIENT
  Age: 49 Year
  Sex: Male
  Weight: 95.2554 kg

DRUGS (6)
  1. LISINOPRIL [Suspect]
     Indication: BLOOD PRESSURE ABNORMAL
     Dosage: 20MG 1/2 TO 1 QD PO
     Route: 048
     Dates: start: 20070102, end: 20070921
  2. LISINOPRIL [Suspect]
     Indication: MIGRAINE
     Dosage: 20MG 1/2 TO 1 QD PO
     Route: 048
     Dates: start: 20070102, end: 20070921
  3. ERCAF [Concomitant]
  4. D.H.E. 45 [Concomitant]
  5. ERGOSTAT SL [Concomitant]
  6. ERGOTAMINE SUPPOSITIORIES [Concomitant]

REACTIONS (8)
  - BLOOD PRESSURE INCREASED [None]
  - DRUG INEFFECTIVE [None]
  - FATIGUE [None]
  - HEADACHE [None]
  - INSOMNIA [None]
  - MIGRAINE [None]
  - NO THERAPEUTIC RESPONSE [None]
  - PHARMACEUTICAL PRODUCT COMPLAINT [None]
